FAERS Safety Report 22380205 (Version 4)
Quarter: 2024Q2

REPORT INFORMATION
  Report Type: Report from Study
  Country: DE (occurrence: DE)
  Receive Date: 20230529
  Receipt Date: 20240620
  Transmission Date: 20240716
  Serious: Yes (Other)
  Sender: FDA-Public Use
  Company Number: DE-ROCHE-3230774

PATIENT
  Age: 38 Year
  Sex: Male

DRUGS (4)
  1. OCREVUS [Suspect]
     Active Substance: OCRELIZUMAB
     Indication: Primary progressive multiple sclerosis
     Dosage: 1ST AND 2ND INITIAL DOSE ON 27/APR/2020 AND 11/MAY/2020, 600MG ONE IN 195 DAYS.
     Route: 042
     Dates: start: 20200427
  2. LEVOTHYROXINE [Concomitant]
     Active Substance: LEVOTHYROXINE\LEVOTHYROXINE SODIUM
  3. ESCITALOPRAM [Concomitant]
     Active Substance: ESCITALOPRAM OXALATE
  4. CHOLECALCIFEROL [Concomitant]
     Active Substance: CHOLECALCIFEROL

REACTIONS (13)
  - Gait disturbance [Recovered/Resolved]
  - Muscular weakness [Recovering/Resolving]
  - Cardiovascular disorder [Recovered/Resolved]
  - Hypotension [Recovered/Resolved]
  - Fatigue [Recovered/Resolved]
  - Vertigo [Recovered/Resolved]
  - Sinus disorder [Not Recovered/Not Resolved]
  - COVID-19 [Recovered/Resolved]
  - Tendon rupture [Recovering/Resolving]
  - Prostatic specific antigen increased [Not Recovered/Not Resolved]
  - Peroneal nerve palsy [Recovered/Resolved]
  - B-lymphocyte count decreased [Recovered/Resolved]
  - Magnetic resonance imaging abnormal [Recovered/Resolved]

NARRATIVE: CASE EVENT DATE: 20200427
